FAERS Safety Report 7265178-3 (Version None)
Quarter: 2011Q1

REPORT INFORMATION
  Report Type: 
  Country: None (occurrence: None)
  Receive Date: 20110131
  Receipt Date: 20110127
  Transmission Date: 20110831
  Serious: Yes (Life-Threatening, Hospitalization)
  Sender: FDA-Public Use
  Company Number: PHHO2011IT01248

PATIENT
  Sex: Male
  Weight: 70 kg

DRUGS (4)
  1. AMN107 [Suspect]
     Dosage: 400 MG, QD
     Route: 048
     Dates: start: 20080414
  2. XATRAL [Concomitant]
     Indication: PROSTATOMEGALY
  3. ZYLORIC [Concomitant]
     Indication: PROPHYLAXIS
  4. AMN107 [Suspect]
     Indication: CHRONIC MYELOID LEUKAEMIA
     Dosage: 400 MG, BID
     Route: 048
     Dates: start: 20050727, end: 20080413

REACTIONS (6)
  - ELECTROCARDIOGRAM ST SEGMENT ELEVATION [None]
  - CORONARY ANGIOPLASTY [None]
  - VENTRICULAR HYPOKINESIA [None]
  - CHEST PAIN [None]
  - MYOCARDIAL INFARCTION [None]
  - DYSLIPIDAEMIA [None]
